FAERS Safety Report 23979835 (Version 1)
Quarter: 2024Q2

REPORT INFORMATION
  Report Type: Report from Study
  Country: US (occurrence: US)
  Receive Date: 20240616
  Receipt Date: 20240616
  Transmission Date: 20240717
  Serious: Yes (Other)
  Sender: FDA-Public Use
  Company Number: US-ABBVIE-5800748

PATIENT
  Sex: Female

DRUGS (1)
  1. SKYRIZI [Suspect]
     Active Substance: RISANKIZUMAB-RZAA
     Indication: Product used for unknown indication
     Route: 058
     Dates: start: 20240501

REACTIONS (2)
  - Oral surgery [Recovered/Resolved with Sequelae]
  - Toothache [Unknown]

NARRATIVE: CASE EVENT DATE: 20240101
